FAERS Safety Report 25228518 (Version 2)
Quarter: 2025Q2

REPORT INFORMATION
  Report Type: Spontaneous
  Country: US (occurrence: US)
  Receive Date: 20250423
  Receipt Date: 20250512
  Transmission Date: 20250717
  Serious: Yes (Other)
  Sender: UCB
  Company Number: US-UCBSA-2024059313

PATIENT
  Age: 40 Year
  Sex: Female

DRUGS (9)
  1. CIMZIA [Suspect]
     Active Substance: CERTOLIZUMAB PEGOL
     Indication: Ankylosing spondylitis
     Dosage: 200 MILLIGRAM, EV 2 WEEKS(QOW)
     Route: 058
     Dates: start: 202207
  2. GONAL F RFF [Concomitant]
     Indication: Product used for unknown indication
  3. MENOPUR [Concomitant]
     Active Substance: FOLLITROPIN\LUTEINIZING HORMONE
     Indication: Product used for unknown indication
  4. CETRORELIX ACETATE [Concomitant]
     Active Substance: CETRORELIX ACETATE
     Indication: Product used for unknown indication
  5. TACROLIMUS [Concomitant]
     Active Substance: TACROLIMUS
     Indication: Product used for unknown indication
  6. DUPIXENT [Concomitant]
     Active Substance: DUPILUMAB
     Indication: Product used for unknown indication
  7. ESTRADIOL [Concomitant]
     Active Substance: ESTRADIOL
     Indication: Product used for unknown indication
  8. NOVAREL [Concomitant]
     Active Substance: CHORIOGONADOTROPIN ALFA
     Indication: Product used for unknown indication
  9. ENDOMETRIN [Concomitant]
     Active Substance: PROGESTERONE
     Indication: Product used for unknown indication

REACTIONS (3)
  - Ankylosing spondylitis [Unknown]
  - Injection site rash [Unknown]
  - Injection site pain [Unknown]

NARRATIVE: CASE EVENT DATE: 20250301
